FAERS Safety Report 4907597-3 (Version None)
Quarter: 2006Q1

REPORT INFORMATION
  Report Type: 
  Country: None (occurrence: None)
  Receive Date: 20060210
  Receipt Date: 20060131
  Transmission Date: 20060701
  Serious: Yes (Hospitalization)
  Sender: FDA-Public Use
  Company Number: DE-ABBOTT-06P-062-0323873-00

PATIENT
  Sex: Female

DRUGS (4)
  1. HUMIRA [Suspect]
     Indication: DRUG USE FOR UNKNOWN INDICATION
     Dates: start: 20050301
  2. METHOTREXATE SODIUM [Concomitant]
     Indication: DRUG USE FOR UNKNOWN INDICATION
  3. METHOTREXATE SODIUM [Concomitant]
  4. METHOTREXATE SODIUM [Concomitant]

REACTIONS (4)
  - ARTHRODESIS [None]
  - DRY EYE [None]
  - MUSCLE SPASMS [None]
  - VISUAL DISTURBANCE [None]
